FAERS Safety Report 5339899-3 (Version None)
Quarter: 2007Q2

REPORT INFORMATION
  Report Type: 
  Country: None (occurrence: None)
  Receive Date: 20070531
  Receipt Date: 20070523
  Transmission Date: 20071010
  Serious: Yes (Disabling, Other)
  Sender: FDA-Public Use
  Company Number: IT-NOVOPROD-263789

PATIENT
  Sex: Male
  Weight: 69 kg

DRUGS (1)
  1. NOVOLOG MIX 70/30 [Suspect]
     Indication: DIABETES MELLITUS
     Route: 058
     Dates: start: 20051019

REACTIONS (1)
  - ASTHENIA [None]
